FAERS Safety Report 9349430 (Version 1)
Quarter: 2013Q2

REPORT INFORMATION
  Report Type: Spontaneous
  Country: US (occurrence: US)
  Receive Date: 20130614
  Receipt Date: 20130614
  Transmission Date: 20140414
  Serious: Yes (Death, Hospitalization)
  Sender: FDA-Public Use
  Company Number: US-BAXTER-2013BAX021482

PATIENT
  Age: 78 Year
  Sex: Male

DRUGS (2)
  1. DIANEAL LOW CALCIUM [Suspect]
     Indication: PERITONEAL DIALYSIS
     Route: 033
     Dates: start: 20130403, end: 20130606
  2. DIANEAL LOW CALCIUM [Suspect]
     Indication: PERITONEAL DIALYSIS
     Route: 033
     Dates: start: 20130403, end: 20130606

REACTIONS (5)
  - Pulmonary haemorrhage [Fatal]
  - Gastrointestinal disorder [Fatal]
  - Fall [Fatal]
  - Pneumothorax [Fatal]
  - Haemothorax [Not Recovered/Not Resolved]
